FAERS Safety Report 12957212 (Version 1)
Quarter: 2016Q4

REPORT INFORMATION
  Report Type: Spontaneous
  Country: IT (occurrence: IT)
  Receive Date: 20161118
  Receipt Date: 20161118
  Transmission Date: 20170207
  Serious: Yes (Other)
  Sender: FDA-Public Use
  Company Number: IT-DEPOMED, INC.-IT-2016DEP012737

PATIENT
  Age: 68 Year
  Sex: Male

DRUGS (6)
  1. VORICONAZOLE. [Concomitant]
     Active Substance: VORICONAZOLE
     Dosage: 4 MG/KG, BID
     Route: 042
  2. VORICONAZOLE. [Concomitant]
     Active Substance: VORICONAZOLE
     Indication: EYE INFECTION FUNGAL
     Dosage: 6 MG/KG, BID
     Route: 042
  3. ACETAMINOPHEN. [Suspect]
     Active Substance: ACETAMINOPHEN
     Indication: EYE PAIN
     Dosage: 500 MG, UNK
  4. VORICONAZOLE. [Concomitant]
     Active Substance: VORICONAZOLE
     Dosage: 200 MG, BID
     Route: 048
  5. GABAPENTIN. [Suspect]
     Active Substance: GABAPENTIN
     Indication: EYE PAIN
     Dosage: 300 MG, QD
  6. CODEINE [Suspect]
     Active Substance: CODEINE
     Indication: EYE PAIN
     Dosage: 30 MG, QD

REACTIONS (6)
  - Nervous system disorder [Recovering/Resolving]
  - Hallucination, visual [Recovering/Resolving]
  - Gait disturbance [Recovering/Resolving]
  - Ataxia [Recovering/Resolving]
  - Balance disorder [Recovering/Resolving]
  - Psychomotor skills impaired [Recovering/Resolving]
